FAERS Safety Report 12227819 (Version 1)
Quarter: 2016Q2

REPORT INFORMATION
  Report Type: Report from Study
  Country: JP (occurrence: JP)
  Receive Date: 20160401
  Receipt Date: 20160401
  Transmission Date: 20160815
  Serious: Yes (Other)
  Sender: FDA-Public Use
  Company Number: JP-ROCHE-1732896

PATIENT

DRUGS (2)
  1. BEVACIZUMAB [Suspect]
     Active Substance: BEVACIZUMAB
     Indication: BREAST CANCER METASTATIC
     Route: 065
  2. PACLITAXEL. [Suspect]
     Active Substance: PACLITAXEL
     Indication: BREAST CANCER METASTATIC
     Route: 065

REACTIONS (14)
  - Hypertension [Unknown]
  - Thrombocytopenia [Unknown]
  - Gastrointestinal haemorrhage [Unknown]
  - Neutropenia [Unknown]
  - Neuropathy peripheral [Unknown]
  - Pneumonia [Unknown]
  - Stomatitis [Unknown]
  - Proteinuria [Unknown]
  - Liver injury [Unknown]
  - Oedema [Unknown]
  - Fatigue [Unknown]
  - Decreased appetite [Unknown]
  - Haematuria [Unknown]
  - Tumour haemorrhage [Unknown]
